FAERS Safety Report 21963166 (Version 1)
Quarter: 2023Q1

REPORT INFORMATION
  Report Type: Spontaneous
  Country: US (occurrence: US)
  Receive Date: 20230207
  Receipt Date: 20230207
  Transmission Date: 20230418
  Serious: No
  Sender: FDA-Public Use
  Company Number: US-PFIZER INC-PV202300022407

PATIENT
  Age: 58 Year
  Sex: Female

DRUGS (1)
  1. XELJANZ XR [Suspect]
     Active Substance: TOFACITINIB CITRATE
     Dosage: UNK

REACTIONS (6)
  - Dyspnoea [Unknown]
  - Chest pain [Unknown]
  - Breast pain [Unknown]
  - Head discomfort [Unknown]
  - Ear discomfort [Unknown]
  - Musculoskeletal discomfort [Unknown]
